FAERS Safety Report 22226092 (Version 1)
Quarter: 2023Q2

REPORT INFORMATION
  Report Type: Spontaneous
  Country: PL (occurrence: PL)
  Receive Date: 20230419
  Receipt Date: 20230419
  Transmission Date: 20230722
  Serious: Yes (Death, Hospitalization)
  Sender: FDA-Public Use
  Company Number: PL-STRIDES ARCOLAB LIMITED-2023SP005485

PATIENT
  Age: 48 Year
  Sex: Female

DRUGS (27)
  1. DOXORUBICIN [Suspect]
     Active Substance: DOXORUBICIN
     Indication: Follicular lymphoma stage IV
     Dosage: UNK, R-CHOP REGIMEN
     Route: 065
  2. PREDNISOLONE [Suspect]
     Active Substance: PREDNISOLONE
     Indication: Follicular lymphoma stage IV
     Dosage: UNK, R-CHOP REGIMEN
     Route: 065
  3. METHOTREXATE [Suspect]
     Active Substance: METHOTREXATE
     Indication: Follicular lymphoma stage IV
     Dosage: UNK, CYCLICAL, R-MIV-AT REGIMEN, HIGH DOSE, FIRST CYCLE
     Route: 065
  4. METHOTREXATE [Suspect]
     Active Substance: METHOTREXATE
     Dosage: UNK, CYCLICAL, R-MIV-AT REGIMEN, HIGH DOSE, SECOND CYCLE
     Route: 065
  5. METHOTREXATE [Suspect]
     Active Substance: METHOTREXATE
     Dosage: UNK, CYCLICAL, R-MIV-AT REGIMEN, HIGH DOSE, THIRD CYCLE
     Route: 065
  6. METHOTREXATE [Suspect]
     Active Substance: METHOTREXATE
     Dosage: UNK, CYCLICAL, R-MIV-AT REGIMEN, HIGH DOSE, FOURTH CYCLE
     Route: 065
  7. METHOTREXATE [Suspect]
     Active Substance: METHOTREXATE
     Dosage: UNK, CYCLICAL, R-MIV-AT REGIMEN, HIGH DOSE, FINAL CYCLE
     Route: 065
  8. VINCRISTINE [Suspect]
     Active Substance: VINCRISTINE
     Indication: Follicular lymphoma stage IV
     Dosage: UNK, R-CHOP
     Route: 065
  9. VINCRISTINE [Suspect]
     Active Substance: VINCRISTINE
     Dosage: UNK, CYCLICAL, R-MIV-AT REGIMEN, FIRST CYCLE
     Route: 065
  10. VINCRISTINE [Suspect]
     Active Substance: VINCRISTINE
     Dosage: UNK, CYCLICAL, R-MIV-AT REGIMEN, SECOND CYCLE
     Route: 065
  11. VINCRISTINE [Suspect]
     Active Substance: VINCRISTINE
     Dosage: UNK, CYCLICAL, R-MIV-AT REGIMEN, THIRD CYCLE
     Route: 065
  12. VINCRISTINE [Suspect]
     Active Substance: VINCRISTINE
     Dosage: UNK, CYCLICAL, R-MIV-AT REGIMEN, FOURTH CYCLE
     Route: 065
  13. VINCRISTINE [Suspect]
     Active Substance: VINCRISTINE
     Dosage: UNK, CYCLICAL, R-MIV-AT REGIMEN, FINAL CYCLE
     Route: 065
  14. RITUXIMAB [Suspect]
     Active Substance: RITUXIMAB
     Indication: Follicular lymphoma stage IV
     Dosage: UNK, R-CHOP
     Route: 065
  15. RITUXIMAB [Suspect]
     Active Substance: RITUXIMAB
     Dosage: UNK, CYCLICAL, R-MIV-AT REGIMEN, FIRST CYCLE
     Route: 065
  16. RITUXIMAB [Suspect]
     Active Substance: RITUXIMAB
     Dosage: UNK, CYCLICAL, R-MIV-AT REGIMEN, SECOND CYCLE
     Route: 065
  17. RITUXIMAB [Suspect]
     Active Substance: RITUXIMAB
     Dosage: UNK, CYCLICAL, R-MIV-AT REGIMEN, THIRD CYCLE
     Route: 065
  18. RITUXIMAB [Suspect]
     Active Substance: RITUXIMAB
     Dosage: UNK, CYCLICAL, R-MIV-AT REGIMEN, FOURTH CYCLE
     Route: 065
  19. RITUXIMAB [Suspect]
     Active Substance: RITUXIMAB
     Dosage: UNK, CYCLICAL, R-MIV-AT REGIMEN, FINAL CYCLE
     Route: 065
  20. CYCLOPHOSPHAMIDE [Suspect]
     Active Substance: CYCLOPHOSPHAMIDE
     Indication: Follicular lymphoma stage IV
     Dosage: UNK, R-CHOP REGIMEN
     Route: 065
  21. IFOSFAMIDE [Suspect]
     Active Substance: IFOSFAMIDE
     Indication: Follicular lymphoma stage IV
     Dosage: UNK, CYCLICAL, R-MIV-AT REGIMEN, FIRST CYCLE
     Route: 065
  22. IFOSFAMIDE [Suspect]
     Active Substance: IFOSFAMIDE
     Dosage: UNK, CYCLICAL, R-MIV-AT REGIMEN, SECOND CYCLE
     Route: 065
  23. IFOSFAMIDE [Suspect]
     Active Substance: IFOSFAMIDE
     Dosage: UNK, CYCLICAL, R-MIV-AT REGIMEN, THIRD CYCLE
     Route: 065
  24. IFOSFAMIDE [Suspect]
     Active Substance: IFOSFAMIDE
     Dosage: UNK, CYCLICAL, R-MIV-AT REGIMEN, FOURTH CYCLE
     Route: 065
  25. IFOSFAMIDE [Suspect]
     Active Substance: IFOSFAMIDE
     Dosage: UNK, CYCLICAL, R-MIV-AT REGIMEN, FINAL CYCLE
     Route: 065
  26. CYTARABINE [Suspect]
     Active Substance: CYTARABINE
     Indication: Follicular lymphoma stage IV
     Dosage: UNK, CYCLICAL, R-MIV-AT REGIMEN
     Route: 065
  27. THIOTEPA [Suspect]
     Active Substance: THIOTEPA
     Indication: Follicular lymphoma stage IV
     Dosage: UNK, CYCLICAL, R-MIV-AT REGIMEN
     Route: 065

REACTIONS (5)
  - Acute respiratory distress syndrome [Fatal]
  - Multiple organ dysfunction syndrome [Fatal]
  - COVID-19 [Fatal]
  - Drug ineffective [Unknown]
  - Therapy partial responder [Unknown]

NARRATIVE: CASE EVENT DATE: 20210401
